FAERS Safety Report 8919216 (Version 1)
Quarter: 2012Q4

REPORT INFORMATION
  Report Type: 
  Country: FR (occurrence: FR)
  Receive Date: 20121121
  Receipt Date: 20121121
  Transmission Date: 20130627
  Serious: Yes (Hospitalization)
  Sender: FDA-Public Use
  Company Number: FR-PFIZER INC-2012287477

PATIENT
  Age: 80 Year
  Sex: Female

DRUGS (19)
  1. LYRICA [Suspect]
     Indication: NEUROPATHIC PAIN
     Dosage: 50 mg, 3x/day
     Route: 048
     Dates: start: 20120911, end: 20121001
  2. SKENAN [Suspect]
     Indication: BACK PAIN
     Dosage: 30 mg, 2x/day
     Route: 048
     Dates: start: 20120923, end: 20121001
  3. ACTISKENAN [Suspect]
     Indication: ANALGESIC THERAPY
     Dosage: 10 mg, UNK
     Route: 048
     Dates: end: 20121001
  4. ACTISKENAN [Suspect]
     Dosage: 5 mg, UNK
     Dates: start: 20121002
  5. SERESTA [Suspect]
     Indication: ANXIETY
     Dosage: 25 mg, 1x/day
     Route: 048
     Dates: start: 20120911, end: 20121001
  6. SERESTA [Suspect]
     Dosage: 10 mg, 1x/day
     Dates: start: 20121002
  7. MYOLASTAN [Suspect]
     Indication: ANALGESIC THERAPY
     Dosage: 50 mg, 1x/day
     Route: 048
     Dates: start: 20120911, end: 20121001
  8. SIMVASTATIN [Concomitant]
  9. AERIUS [Concomitant]
  10. ENALAPRIL MALEATE [Concomitant]
     Dosage: 20 mg
  11. ESIDREX [Concomitant]
     Dosage: 25 mg
  12. INIPOMP [Concomitant]
     Dosage: 40 mg
  13. TEMERIT [Concomitant]
     Dosage: 5 mg
  14. KARDEGIC [Concomitant]
     Dosage: 300 mg
  15. TRANSIPEG [Concomitant]
  16. FRAGMIN [Concomitant]
  17. DOLIPRANE [Concomitant]
     Dosage: 500 mg
  18. TOPALGIC [Concomitant]
     Dosage: 200 mg, 2x/day
     Dates: end: 20120923
  19. BI-PROFENID [Concomitant]
     Dosage: UNK
     Dates: end: 20100914

REACTIONS (3)
  - Somnolence [Recovered/Resolved]
  - Confusional state [Recovered/Resolved]
  - Movement disorder [Recovered/Resolved]
